FAERS Safety Report 17004870 (Version 1)
Quarter: 2019Q4

REPORT INFORMATION
  Report Type: Spontaneous
  Country: US (occurrence: US)
  Receive Date: 20190925
  Receipt Date: 20190925
  Transmission Date: 20200122
  Serious: No
  Sender: FDA-Public Use
  Company Number: None

PATIENT

DRUGS (1)
  1. ACETAMINOPHEN PAIN RELIEVER FEVER REDUCER [Suspect]
     Active Substance: ACETAMINOPHEN

REACTIONS (2)
  - Intercepted product selection error [None]
  - Product appearance confusion [None]
